FAERS Safety Report 24662855 (Version 1)
Quarter: 2024Q4

REPORT INFORMATION
  Report Type: Spontaneous
  Country: CO (occurrence: CO)
  Receive Date: 20241126
  Receipt Date: 20241126
  Transmission Date: 20250115
  Serious: Yes (Other)
  Sender: CHEPLAPHARM
  Company Number: CO-CHEPLA-2024014695

PATIENT
  Age: 4 Decade
  Sex: Male

DRUGS (4)
  1. CLONAZEPAM [Suspect]
     Active Substance: CLONAZEPAM
  2. KETAMINE [Suspect]
     Active Substance: KETAMINE
  3. MIDAZOLAM [Suspect]
     Active Substance: MIDAZOLAM
  4. METHAMPHETAMINE [Suspect]
     Active Substance: METHAMPHETAMINE

REACTIONS (5)
  - Substance abuse [Unknown]
  - Axonal and demyelinating polyneuropathy [Unknown]
  - Aortic valve incompetence [Unknown]
  - Mitral valve incompetence [Unknown]
  - Vasospasm [Unknown]
